FAERS Safety Report 16297578 (Version 3)
Quarter: 2019Q2

REPORT INFORMATION
  Report Type: Report from Study
  Country: BR (occurrence: BR)
  Receive Date: 20190510
  Receipt Date: 20190523
  Transmission Date: 20190711
  Serious: Yes (Hospitalization, Other)
  Sender: FDA-Public Use
  Company Number: PHHY2019BR104159

PATIENT
  Age: 80 Year
  Sex: Male

DRUGS (4)
  1. COSENTYX [Suspect]
     Active Substance: SECUKINUMAB
     Dosage: 300 MG, QMO
     Route: 058
  2. SIMVASTATIN. [Concomitant]
     Active Substance: SIMVASTATIN
     Indication: BLOOD CHOLESTEROL ABNORMAL
     Dosage: 1 DF, QD
     Route: 048
     Dates: start: 1999
  3. ENALAPRIL MALEATE. [Concomitant]
     Active Substance: ENALAPRIL MALEATE
     Indication: HYPERTENSION
     Dosage: 1 DF, QD
     Route: 048
     Dates: start: 2014
  4. COSENTYX [Suspect]
     Active Substance: SECUKINUMAB
     Indication: PSORIASIS
     Dosage: UNK
     Route: 065
     Dates: start: 20190215

REACTIONS (11)
  - Device related infection [Recovered/Resolved]
  - Pruritus [Unknown]
  - Pyrexia [Recovered/Resolved]
  - Inappropriate schedule of product administration [Unknown]
  - Visual impairment [Unknown]
  - Malaise [Recovered/Resolved]
  - Syncope [Recovered/Resolved]
  - Catheter site swelling [Unknown]
  - Blood pressure decreased [Recovered/Resolved]
  - Infection [Unknown]
  - Catheter site pain [Unknown]

NARRATIVE: CASE EVENT DATE: 201903
